FAERS Safety Report 8974230 (Version 1)
Quarter: 2012Q4

REPORT INFORMATION
  Report Type: Spontaneous
  Country: CL (occurrence: None)
  Receive Date: 20121212
  Receipt Date: 20121212
  Transmission Date: 20130627
  Serious: Yes (Hospitalization, Other)
  Sender: FDA-Public Use
  Company Number: 142860

PATIENT
  Sex: Male

DRUGS (1)
  1. PROPRANOLOL HCL [Suspect]

REACTIONS (6)
  - Medication error [None]
  - Overdose [None]
  - Toxicity to various agents [None]
  - Restlessness [None]
  - Euphoric mood [None]
  - Insomnia [None]
